FAERS Safety Report 7611939-8 (Version None)
Quarter: 2011Q3

REPORT INFORMATION
  Report Type: 
  Country: None (occurrence: None)
  Receive Date: 20110715
  Receipt Date: 20110704
  Transmission Date: 20111222
  Serious: Yes (Other)
  Sender: FDA-Public Use
  Company Number: FR-UCBSA-036601

PATIENT
  Sex: Male

DRUGS (1)
  1. KEPPRA [Suspect]
     Indication: EPILEPSY
     Route: 048

REACTIONS (1)
  - PERIARTHRITIS [None]
